FAERS Safety Report 5944310-5 (Version None)
Quarter: 2008Q4

REPORT INFORMATION
  Report Type: 
  Country: None (occurrence: None)
  Receive Date: 20081105
  Receipt Date: 20081028
  Transmission Date: 20090506
  Serious: Yes (Death)
  Sender: FDA-Public Use
  Company Number: 2008S1019492

PATIENT
  Age: 47 Year
  Sex: Female

DRUGS (1)
  1. FENTANYL TRANSDERMAL SYSTEM [Suspect]
     Indication: PAIN
     Dosage: 75 UG; EVERY HOUR, TRANSDERMAL
     Route: 062
     Dates: end: 20061001

REACTIONS (3)
  - ANOXIC ENCEPHALOPATHY [None]
  - DRUG TOXICITY [None]
  - RESPIRATORY ARREST [None]
